FAERS Safety Report 23028701 (Version 1)
Quarter: 2023Q4

REPORT INFORMATION
  Report Type: Spontaneous
  Country: US (occurrence: None)
  Receive Date: 20231004
  Receipt Date: 20231004
  Transmission Date: 20240110
  Serious: Yes (Death)
  Sender: FDA-Public Use
  Company Number: None

PATIENT
  Age: 73 Year
  Sex: Male

DRUGS (4)
  1. VOTRIENT [Suspect]
     Active Substance: PAZOPANIB HYDROCHLORIDE
     Indication: Renal cancer
     Dosage: OTHER FREQUENCY : QHS;?
     Route: 048
     Dates: start: 20200530
  2. XGEVA [Concomitant]
     Active Substance: DENOSUMAB
  3. MORPHINE SULFATE [Concomitant]
     Active Substance: MORPHINE SULFATE
  4. OXYCODONE [Concomitant]

REACTIONS (3)
  - Death [None]
  - Therapy cessation [None]
  - Renal cancer [None]

NARRATIVE: CASE EVENT DATE: 20230609
